FAERS Safety Report 6600156-6 (Version None)
Quarter: 2010Q1

REPORT INFORMATION
  Report Type: 
  Country: None (occurrence: None)
  Receive Date: 20100224
  Receipt Date: 20100216
  Transmission Date: 20100710
  Serious: Yes (Hospitalization)
  Sender: FDA-Public Use
  Company Number: A0843376A

PATIENT
  Sex: Female

DRUGS (1)
  1. TYKERB [Suspect]
     Indication: BREAST CANCER
     Dosage: 1250MG PER DAY
     Route: 048
     Dates: start: 20100122, end: 20100208

REACTIONS (4)
  - BILE DUCT OBSTRUCTION [None]
  - BREAST CANCER [None]
  - LIVER INJURY [None]
  - STENT PLACEMENT [None]
